FAERS Safety Report 7325149-5 (Version None)
Quarter: 2011Q1

REPORT INFORMATION
  Report Type: 
  Country: None (occurrence: None)
  Receive Date: 20110302
  Receipt Date: 20110216
  Transmission Date: 20110831
  Serious: Yes (Hospitalization, Other)
  Sender: FDA-Public Use
  Company Number: PHHY2009DE39337

PATIENT
  Sex: Female

DRUGS (4)
  1. ACE INHIBITOR NOS [Concomitant]
  2. BETA BLOCKING AGENTS [Concomitant]
  3. EXTAVIA [Suspect]
     Dosage: 250 UG, UNK
     Route: 058
     Dates: start: 20090715, end: 20090904
  4. EXTAVIA [Suspect]
     Indication: MULTIPLE SCLEROSIS
     Dosage: 250 UG, EVERY SECOND DAY
     Route: 058
     Dates: start: 20090719

REACTIONS (7)
  - HEPATIC ENZYME INCREASED [None]
  - ASPARTATE AMINOTRANSFERASE INCREASED [None]
  - HEPATIC FUNCTION ABNORMAL [None]
  - HEPATIC FAILURE [None]
  - BLOOD BILIRUBIN INCREASED [None]
  - GAMMA-GLUTAMYLTRANSFERASE INCREASED [None]
  - LIVER INJURY [None]
